FAERS Safety Report 8118559-X (Version None)
Quarter: 2012Q1

REPORT INFORMATION
  Report Type: 
  Country: None (occurrence: None)
  Receive Date: 20120207
  Receipt Date: 20120201
  Transmission Date: 20120608
  Serious: Yes (Other)
  Sender: FDA-Public Use
  Company Number: DE-PFIZER INC-2012020141

PATIENT
  Sex: Female

DRUGS (2)
  1. VENLAFAXINE [Suspect]
  2. VENLAFAXINE HCL [Suspect]
     Dosage: 150MG TO 300MG PER DAY
     Dates: end: 20100101

REACTIONS (5)
  - RENAL FAILURE [None]
  - CHOLELITHIASIS [None]
  - INFLAMMATION [None]
  - RASH MACULAR [None]
  - ERYSIPELAS [None]
